FAERS Safety Report 21232462 (Version 1)
Quarter: 2022Q3

REPORT INFORMATION
  Report Type: Report from Study
  Country: US (occurrence: None)
  Receive Date: 20220819
  Receipt Date: 20220819
  Transmission Date: 20221027
  Serious: Yes (Other)
  Sender: FDA-Public Use
  Company Number: US-Eisai Medical Research-EC-2022-120140

PATIENT
  Age: 73 Year
  Sex: Male

DRUGS (1)
  1. LENVIMA [Suspect]
     Active Substance: LENVATINIB
     Indication: Thyroid cancer
     Route: 048
     Dates: start: 20220712, end: 20220806

REACTIONS (8)
  - Atrial fibrillation [Unknown]
  - Blood pressure increased [Unknown]
  - Taste disorder [Unknown]
  - Decreased appetite [Unknown]
  - Dysphonia [Unknown]
  - Headache [Unknown]
  - Eye pain [Unknown]
  - Fatigue [Unknown]

NARRATIVE: CASE EVENT DATE: 20220701
